FAERS Safety Report 5705237-7 (Version None)
Quarter: 2008Q2

REPORT INFORMATION
  Report Type: 
  Country: None (occurrence: None)
  Receive Date: 20080410
  Receipt Date: 20080326
  Transmission Date: 20081010
  Serious: Yes (Hospitalization)
  Sender: FDA-Public Use
  Company Number: S08-NOR-01323-01

PATIENT
  Age: 51 Year
  Sex: Female

DRUGS (3)
  1. ESCITALOPRAM [Suspect]
     Indication: DEPRESSION
     Dates: start: 20080226, end: 20080307
  2. ACOMPLIA [Suspect]
     Indication: OVERWEIGHT
     Dosage: 20 MG QD PO
     Route: 048
     Dates: start: 20080226, end: 20080307
  3. ANTIHYPERTENSIVES [Concomitant]

REACTIONS (5)
  - DRUG INTERACTION [None]
  - MOUTH HAEMORRHAGE [None]
  - RECTAL HAEMORRHAGE [None]
  - THROMBOCYTOPENIA [None]
  - VAGINAL HAEMORRHAGE [None]
